FAERS Safety Report 25030265 (Version 1)
Quarter: 2025Q1

REPORT INFORMATION
  Report Type: Spontaneous
  Country: IT (occurrence: IT)
  Receive Date: 20250303
  Receipt Date: 20250303
  Transmission Date: 20250409
  Serious: Yes (Other)
  Sender: GILEAD
  Company Number: IT-GILEAD-2025-0705388

PATIENT

DRUGS (1)
  1. VOSEVI [Suspect]
     Active Substance: SOFOSBUVIR\VELPATASVIR\VOXILAPREVIR
     Indication: Hepatitis C
     Route: 065
     Dates: start: 202404, end: 202406

REACTIONS (2)
  - Hepatitis C [Unknown]
  - Drug ineffective [Unknown]
